FAERS Safety Report 21677155 (Version 4)
Quarter: 2023Q1

REPORT INFORMATION
  Report Type: Report from Study
  Country: US (occurrence: US)
  Receive Date: 20221203
  Receipt Date: 20230313
  Transmission Date: 20230418
  Serious: No
  Sender: FDA-Public Use
  Company Number: US-ABBVIE-4178736

PATIENT
  Sex: Female

DRUGS (3)
  1. HUMIRA [Suspect]
     Active Substance: ADALIMUMAB
     Indication: Crohn^s disease
     Route: 058
  2. HUMIRA [Suspect]
     Active Substance: ADALIMUMAB
     Route: 058
     Dates: start: 20220617
  3. HUMIRA [Suspect]
     Active Substance: ADALIMUMAB
     Route: 058

REACTIONS (7)
  - Drug level abnormal [Unknown]
  - Hepatic enzyme increased [Recovered/Resolved]
  - Hepatic steatosis [Unknown]
  - Irritable bowel syndrome [Unknown]
  - Therapeutic product effect incomplete [Not Recovered/Not Resolved]
  - Injection site pain [Unknown]
  - Hypertension [Not Recovered/Not Resolved]
